FAERS Safety Report 24069839 (Version 2)
Quarter: 2024Q3

REPORT INFORMATION
  Report Type: Report from Study
  Country: US (occurrence: US)
  Receive Date: 20240710
  Receipt Date: 20240710
  Transmission Date: 20241017
  Serious: No
  Sender: ROCHE
  Company Number: US-ROCHE-3544817

PATIENT
  Age: 81 Year
  Sex: Male

DRUGS (3)
  1. VABYSMO [Suspect]
     Active Substance: FARICIMAB\FARICIMAB-SVOA
     Indication: Retinal neovascularisation
     Dosage: DATE OF SERVICE: 03/APR/2024, 10/MAY/2024, EVERY 4-6 WEEKS
     Route: 065
  2. VABYSMO [Suspect]
     Active Substance: FARICIMAB\FARICIMAB-SVOA
     Indication: Histoplasmosis
  3. LATANOPROST [Concomitant]
     Active Substance: LATANOPROST

REACTIONS (2)
  - Off label use [Unknown]
  - No adverse event [Unknown]
